FAERS Safety Report 7918569-9 (Version None)
Quarter: 2011Q4

REPORT INFORMATION
  Report Type: 
  Country: None (occurrence: None)
  Receive Date: 20111116
  Receipt Date: 20111108
  Transmission Date: 20120403
  Serious: Yes (Other)
  Sender: FDA-Public Use
  Company Number: US-BAYER-2011-108889

PATIENT
  Age: 20 Year
  Sex: Female
  Weight: 73 kg

DRUGS (1)
  1. ALEVE (CAPLET) [Suspect]
     Indication: HEADACHE
     Route: 048

REACTIONS (2)
  - DIZZINESS [None]
  - BALANCE DISORDER [None]
